FAERS Safety Report 14547993 (Version 1)
Quarter: 2018Q1

REPORT INFORMATION
  Report Type: Spontaneous
  Country: CN (occurrence: CN)
  Receive Date: 20180219
  Receipt Date: 20180219
  Transmission Date: 20180509
  Serious: Yes (Hospitalization, Other)
  Sender: FDA-Public Use
  Company Number: CN-MYLANLABS-2018M1011231

PATIENT
  Age: 47 Year
  Sex: Male

DRUGS (3)
  1. PREDNISONE. [Concomitant]
     Active Substance: PREDNISONE
     Dosage: 50MG/DAY
     Route: 065
  2. AZATHIOPRINE. [Suspect]
     Active Substance: AZATHIOPRINE
     Indication: PEMPHIGUS
     Dosage: 150MG/DAY
     Route: 065
  3. PREDNISONE. [Concomitant]
     Active Substance: PREDNISONE
     Indication: PEMPHIGUS
     Dosage: 60MG/DAY INITIALLY; LATER DOSE REDUCED TO 50MG/DAY AFTER START OF AZATHIOPRINE
     Route: 065

REACTIONS (4)
  - Respiratory failure [Unknown]
  - Herpes simplex [Unknown]
  - Leukopenia [Recovered/Resolved]
  - Pneumonia [Unknown]
